FAERS Safety Report 17047929 (Version 1)
Quarter: 2019Q4

REPORT INFORMATION
  Report Type: Spontaneous
  Country: ES (occurrence: ES)
  Receive Date: 20191119
  Receipt Date: 20191119
  Transmission Date: 20200122
  Serious: Yes (Other)
  Sender: FDA-Public Use
  Company Number: ES-PFIZER INC-2019497637

PATIENT
  Age: 43 Year
  Sex: Female
  Weight: 62 kg

DRUGS (1)
  1. VANCOMYCIN HCL [Suspect]
     Active Substance: VANCOMYCIN HYDROCHLORIDE
     Indication: IMMUNODEFICIENCY
     Dosage: 1000 MG, EVERY 12 HOURS
     Route: 041
     Dates: start: 20191020, end: 20191022

REACTIONS (4)
  - Swelling [Recovered/Resolved]
  - Erythema [Recovered/Resolved]
  - Dermatitis [Recovered/Resolved]
  - Dyspnoea [Recovered/Resolved]

NARRATIVE: CASE EVENT DATE: 20191020
